FAERS Safety Report 7286125-4 (Version None)
Quarter: 2011Q1

REPORT INFORMATION
  Report Type: 
  Country: None (occurrence: None)
  Receive Date: 20110126
  Receipt Date: 20110110
  Transmission Date: 20110831
  Serious: Yes (Hospitalization, Other)
  Sender: FDA-Public Use
  Company Number: 20110033

PATIENT
  Age: 76 Year
  Sex: Female

DRUGS (3)
  1. TRIAMTERENE [Suspect]
     Indication: HYPERTENSION
  2. FUROSEMIDE [Suspect]
     Indication: HYPERTENSION
  3. HYDROCHLOROTHIAZIDE [Suspect]
     Indication: HYPERTENSION

REACTIONS (10)
  - AGITATION [None]
  - BLOOD CREATINE PHOSPHOKINASE MB INCREASED [None]
  - HYPONATRAEMIA [None]
  - CONFUSIONAL STATE [None]
  - LEFT VENTRICULAR DYSFUNCTION [None]
  - STRESS [None]
  - ACUTE CORONARY SYNDROME [None]
  - CARDIOMYOPATHY [None]
  - DISORIENTATION [None]
  - ELECTROCARDIOGRAM ST SEGMENT ELEVATION [None]
